FAERS Safety Report 26086427 (Version 1)
Quarter: 2025Q4

REPORT INFORMATION
  Report Type: Spontaneous
  Country: US (occurrence: US)
  Receive Date: 20251125
  Receipt Date: 20251125
  Transmission Date: 20260118
  Serious: No
  Sender: LUPIN
  Company Number: US-LUPIN PHARMACEUTICALS INC.-2025-10567

PATIENT
  Age: 62 Year
  Weight: 81.633 kg

DRUGS (2)
  1. BUDESONIDE [Suspect]
     Active Substance: BUDESONIDE
     Indication: Cough
     Dosage: 0.5 MG/2 ML TWICE DAILY, BID
  2. BUDESONIDE [Suspect]
     Active Substance: BUDESONIDE
     Indication: Bronchitis

REACTIONS (3)
  - Off label use [Unknown]
  - Liquid product physical issue [Unknown]
  - Device delivery system issue [Unknown]
